FAERS Safety Report 11279614 (Version 1)
Quarter: 2015Q3

REPORT INFORMATION
  Report Type: Spontaneous
  Country: US (occurrence: US)
  Receive Date: 20150717
  Receipt Date: 20150717
  Transmission Date: 20151125
  Serious: Yes (Other)
  Sender: FDA-Public Use
  Company Number: US-BAYER-2015-376269

PATIENT
  Age: 59 Year
  Sex: Male
  Weight: 126.53 kg

DRUGS (10)
  1. CIPRO [Suspect]
     Active Substance: CIPROFLOXACIN HYDROCHLORIDE
     Indication: PARONYCHIA
  2. LOVENOX [Suspect]
     Active Substance: ENOXAPARIN SODIUM
     Dosage: UNK UNK, BID
  3. TENORMIN [Concomitant]
     Active Substance: ATENOLOL
  4. SIMVASTATIN. [Concomitant]
     Active Substance: SIMVASTATIN
  5. ATIVAN [Concomitant]
     Active Substance: LORAZEPAM
  6. ZOFRAN [Concomitant]
     Active Substance: ONDANSETRON HYDROCHLORIDE
  7. PROTONIX [Concomitant]
     Active Substance: PANTOPRAZOLE SODIUM
  8. NORCO [Concomitant]
     Active Substance: ACETAMINOPHEN\HYDROCODONE BITARTRATE
  9. VITAMIN D [Concomitant]
     Active Substance: CHOLECALCIFEROL
  10. SUTENT [Suspect]
     Active Substance: SUNITINIB MALATE
     Dosage: 50 MG, UNK
     Dates: start: 20150331

REACTIONS (15)
  - Dysgeusia [None]
  - Chills [None]
  - Nasopharyngitis [None]
  - Epistaxis [None]
  - Rash [None]
  - Injection site bruising [None]
  - Anaemia [None]
  - Dry skin [None]
  - Asthenia [None]
  - Rash pruritic [None]
  - Nausea [None]
  - Pain in extremity [None]
  - Fatigue [None]
  - Stool analysis abnormal [None]
  - Depression [None]
